FAERS Safety Report 21547262 (Version 3)
Quarter: 2022Q4

REPORT INFORMATION
  Report Type: Spontaneous
  Country: US (occurrence: US)
  Receive Date: 20221103
  Receipt Date: 20221124
  Transmission Date: 20230113
  Serious: Yes (Death, Life-Threatening, Hospitalization, Other)
  Sender: FDA-Public Use
  Company Number: US-Accord-283964

PATIENT
  Age: 67 Year
  Sex: Male

DRUGS (3)
  1. METHOTREXATE [Suspect]
     Active Substance: METHOTREXATE
     Indication: Psoriatic arthropathy
     Dosage: 10 MG WEEKLY
  2. APREMILAST [Suspect]
     Active Substance: APREMILAST
     Indication: Psoriasis
     Dosage: 30 MG DAILY FOR APPROXIMATELY 4 MONTHS
  3. ASPIRIN [Concomitant]
     Active Substance: ASPIRIN
     Indication: Coronary artery disease
     Dosage: 81 MG DAILY

REACTIONS (14)
  - Sepsis [Unknown]
  - Hypertransaminasaemia [Unknown]
  - Rash [Unknown]
  - Multiple organ dysfunction syndrome [Fatal]
  - Toxicity to various agents [Fatal]
  - Diarrhoea [Unknown]
  - Abdominal pain [Unknown]
  - Respiratory failure [Fatal]
  - Febrile neutropenia [Unknown]
  - Pancytopenia [Fatal]
  - Mucocutaneous ulceration [Unknown]
  - Cholestatic liver injury [Fatal]
  - Scrotal ulcer [Unknown]
  - Mental status changes [Unknown]
